FAERS Safety Report 23869318 (Version 1)
Quarter: 2024Q2

REPORT INFORMATION
  Report Type: Spontaneous
  Country: US (occurrence: None)
  Receive Date: 20240517
  Receipt Date: 20240517
  Transmission Date: 20240715
  Serious: Yes (Death, Hospitalization)
  Sender: FDA-Public Use
  Company Number: None

PATIENT
  Age: 81 Year
  Sex: Female
  Weight: 41.8 kg

DRUGS (1)
  1. PEMBROLIZUMAB [Suspect]
     Active Substance: PEMBROLIZUMAB
     Dates: end: 20240402

REACTIONS (5)
  - Hypotension [None]
  - Small intestinal obstruction [None]
  - Tachyarrhythmia [None]
  - Somnolence [None]
  - Lethargy [None]

NARRATIVE: CASE EVENT DATE: 20240508
